FAERS Safety Report 4689681-5 (Version None)
Quarter: 2005Q2

REPORT INFORMATION
  Report Type: 
  Country: None (occurrence: None)
  Receive Date: 20050614
  Receipt Date: 20050601
  Transmission Date: 20051028
  Serious: Yes (Death, Other)
  Sender: FDA-Public Use
  Company Number: GB-JNJFOC-20050602380

PATIENT
  Weight: 46 kg

DRUGS (11)
  1. REMICADE [Suspect]
     Indication: RHEUMATOID ARTHRITIS
     Route: 042
  2. METHOTREXATE [Concomitant]
     Route: 065
  3. FOLIC ACID [Concomitant]
     Route: 065
  4. LANSOPRAZOLE [Concomitant]
     Route: 065
  5. VOLTAROL [Concomitant]
     Route: 065
  6. OXYCONTIN [Concomitant]
     Route: 065
  7. OXYNORM [Concomitant]
     Route: 065
  8. HALOPERIDOL [Concomitant]
     Route: 065
  9. RITALIN [Concomitant]
     Route: 065
  10. EPILIM [Concomitant]
     Route: 065
  11. LORAZEPAM [Concomitant]
     Route: 065

REACTIONS (2)
  - DEATH [None]
  - LOWER RESPIRATORY TRACT INFECTION [None]
